FAERS Safety Report 9832255 (Version 1)
Quarter: 2014Q1

REPORT INFORMATION
  Report Type: Spontaneous
  Country: US (occurrence: US)
  Receive Date: 20140121
  Receipt Date: 20140121
  Transmission Date: 20141002
  Serious: Yes (Hospitalization)
  Sender: FDA-Public Use
  Company Number: US-BAYER-2014-005133

PATIENT
  Age: 50 Year
  Sex: Female

DRUGS (1)
  1. ADEMPAS [Suspect]
     Indication: PULMONARY ARTERIAL HYPERTENSION
     Dosage: 0.5 MG, TID
     Route: 048

REACTIONS (3)
  - Nausea [None]
  - Vomiting [None]
  - Chest pain [None]
